FAERS Safety Report 10145852 (Version 1)
Quarter: 2014Q2

REPORT INFORMATION
  Report Type: Spontaneous
  Country: US (occurrence: US)
  Receive Date: 20140501
  Receipt Date: 20140501
  Transmission Date: 20141212
  Serious: No
  Sender: FDA-Public Use
  Company Number: US-ABBVIE-13P-163-1156684-00

PATIENT
  Age: 70 Year
  Sex: Male
  Weight: 72.64 kg

DRUGS (3)
  1. CREON [Suspect]
     Indication: PANCREATIC INSUFFICIENCY
     Dates: start: 201308
  2. SYNTHROID [Concomitant]
     Indication: HYPOTHYROIDISM
  3. UNKNOWN CHEMOTHERAPY [Concomitant]
     Indication: PANCREATIC CARCINOMA

REACTIONS (2)
  - Diarrhoea [Not Recovered/Not Resolved]
  - Drug ineffective [Not Recovered/Not Resolved]
